FAERS Safety Report 12540383 (Version 5)
Quarter: 2019Q1

REPORT INFORMATION
  Report Type: Spontaneous
  Country: US (occurrence: US)
  Receive Date: 20160708
  Receipt Date: 20190318
  Transmission Date: 20190417
  Serious: No
  Sender: FDA-Public Use
  Company Number: US-PFIZER INC-2016298666

PATIENT
  Sex: Female
  Weight: 91 kg

DRUGS (7)
  1. RISEDRONATE SODIUM. [Suspect]
     Active Substance: RISEDRONATE SODIUM
     Dosage: UNK
  2. ACTONEL [Suspect]
     Active Substance: RISEDRONATE SODIUM
     Dosage: UNK
  3. LODINE [Suspect]
     Active Substance: ETODOLAC
     Dosage: UNK
  4. CEPHALOSPORIN [Suspect]
     Active Substance: UNSPECIFIED INGREDIENT
     Dosage: UNK
  5. ETODOLAC. [Suspect]
     Active Substance: ETODOLAC
     Dosage: UNK
  6. FENTANYL CITRATE. [Suspect]
     Active Substance: FENTANYL CITRATE
     Dosage: UNK
  7. CYCLOBENZAPRINE. [Suspect]
     Active Substance: CYCLOBENZAPRINE
     Dosage: UNK

REACTIONS (2)
  - Rash [Unknown]
  - Drug hypersensitivity [Unknown]
